FAERS Safety Report 4510710-3 (Version None)
Quarter: 2004Q4

REPORT INFORMATION
  Report Type: 
  Country: None (occurrence: None)
  Receive Date: 20041025
  Receipt Date: 20040330
  Transmission Date: 20050328
  Serious: Yes (Hospitalization)
  Sender: FDA-Public Use
  Company Number: US-JNJFOC-20040206331

PATIENT
  Age: 43 Year
  Sex: Female
  Weight: 58.0604 kg

DRUGS (1)
  1. REMICADE [Suspect]
     Indication: CROHN'S DISEASE
     Dosage: 300 MG, INTRAVENOUS
     Route: 042
     Dates: start: 20040206, end: 20040206

REACTIONS (2)
  - ARTHRALGIA [None]
  - JOINT STIFFNESS [None]
